FAERS Safety Report 6994083-2 (Version None)
Quarter: 2010Q3

REPORT INFORMATION
  Report Type: 
  Country: None (occurrence: None)
  Receive Date: 20100917
  Receipt Date: 20071227
  Transmission Date: 20110219
  Serious: Yes (Other)
  Sender: FDA-Public Use
  Company Number: US-ASTRAZENECA-2007UW12514

PATIENT
  Age: 6496 Day
  Sex: Female
  Weight: 100.2 kg

DRUGS (5)
  1. SEROQUEL [Suspect]
     Indication: SCHIZOPHRENIA
     Route: 048
     Dates: start: 20020101
  2. SEROQUEL [Suspect]
     Route: 048
     Dates: start: 20040217
  3. RISPERDAL [Concomitant]
     Dosage: THREE TIMES A DAY
     Dates: start: 20051231
  4. DEPAKOTE [Concomitant]
     Dosage: 500-1500MG
     Dates: start: 20040311
  5. XANAX [Concomitant]
     Dates: start: 20051231

REACTIONS (1)
  - PANCREATITIS ACUTE [None]
